FAERS Safety Report 5329914-5 (Version None)
Quarter: 2007Q2

REPORT INFORMATION
  Report Type: 
  Country: None (occurrence: None)
  Receive Date: 20070517
  Receipt Date: 20070517
  Transmission Date: 20071010
  Serious: Yes (Other)
  Sender: FDA-Public Use
  Company Number: None

PATIENT
  Age: 67 Year
  Sex: Male
  Weight: 98.7 kg

DRUGS (8)
  1. HEPARIN [Suspect]
     Dosage: 1000U/HR,@10ML/HR,INTRAVEN
     Route: 042
     Dates: start: 20070314, end: 20070315
  2. FUROSEMIDE [Concomitant]
  3. LISINOPRIL [Concomitant]
  4. VITAMIN CAP [Concomitant]
  5. DIGOXIN [Concomitant]
  6. VITAMIN D [Concomitant]
  7. CALCIUM CARBONATE [Concomitant]
  8. ACETAMINOPHEN [Concomitant]

REACTIONS (1)
  - HAEMORRHAGE [None]
